FAERS Safety Report 4893164-7 (Version None)
Quarter: 2005Q4

REPORT INFORMATION
  Report Type: 
  Country: None (occurrence: None)
  Receive Date: 20051223
  Receipt Date: 20050913
  Transmission Date: 20060501
  Serious: No
  Sender: FDA-Public Use
  Company Number: 2005PV002022

PATIENT
  Age: 45 Year
  Sex: Male

DRUGS (1)
  1. SYMLIN [Suspect]
     Indication: DIABETES MELLITUS
     Dosage: 120 MCG; TID; SC
     Route: 058
     Dates: start: 20050830

REACTIONS (1)
  - INJECTION SITE PAIN [None]
